FAERS Safety Report 15793441 (Version 1)
Quarter: 2019Q1

REPORT INFORMATION
  Report Type: Spontaneous
  Country: US (occurrence: US)
  Receive Date: 20190107
  Receipt Date: 20190107
  Transmission Date: 20190417
  Serious: No
  Sender: FDA-Public Use
  Company Number: US-PFIZER INC-2019003538

PATIENT
  Age: 65 Year
  Sex: Female

DRUGS (1)
  1. GENOTROPIN [Suspect]
     Active Substance: SOMATROPIN
     Indication: PITUITARY-DEPENDENT CUSHING^S SYNDROME
     Dosage: 0.5 MG, DAILY
     Dates: start: 20171022

REACTIONS (7)
  - Blood thyroid stimulating hormone decreased [Unknown]
  - Insulin-like growth factor increased [Unknown]
  - Blood glucose increased [Unknown]
  - Blood sodium increased [Unknown]
  - Product use in unapproved indication [Unknown]
  - Red cell distribution width increased [Unknown]
  - Blood chloride increased [Unknown]

NARRATIVE: CASE EVENT DATE: 20171022
